FAERS Safety Report 15560694 (Version 2)
Quarter: 2018Q4

REPORT INFORMATION
  Report Type: Spontaneous
  Country: US (occurrence: US)
  Receive Date: 20181029
  Receipt Date: 20181130
  Transmission Date: 20190205
  Serious: No
  Sender: FDA-Public Use
  Company Number: US-PFIZER INC-2018428557

PATIENT
  Age: 90 Year
  Sex: Male
  Weight: 76.19 kg

DRUGS (2)
  1. BRIMONIDINE [Concomitant]
     Active Substance: BRIMONIDINE TARTRATE
     Indication: GLAUCOMA
     Dosage: UNK, 2X/DAY
  2. LATANOPROST. [Suspect]
     Active Substance: LATANOPROST
     Indication: GLAUCOMA
     Dosage: 2 GTT, 1X/DAY ((125 MCG-2.5 MG/ ONE DROP ONCE A DAY AT BEDTIME))
     Route: 047

REACTIONS (3)
  - Mental disorder [Unknown]
  - Incorrect dose administered [Unknown]
  - Product quality issue [Unknown]
